FAERS Safety Report 4274291-4 (Version None)
Quarter: 2004Q1

REPORT INFORMATION
  Report Type: 
  Country: None (occurrence: None)
  Receive Date: 20040115
  Receipt Date: 20031219
  Transmission Date: 20041129
  Serious: Yes (Hospitalization, Disabling)
  Sender: FDA-Public Use
  Company Number: MK200401-0108-1

PATIENT
  Age: 37 Year

DRUGS (1)
  1. OPTIRAY 300 [Suspect]
     Indication: COMPUTERISED TOMOGRAM
     Dosage: 95CC, IV, ONCE
     Route: 042

REACTIONS (4)
  - EXTRAVASATION [None]
  - MOTOR DYSFUNCTION [None]
  - POST PROCEDURAL COMPLICATION [None]
  - SCAR [None]
